FAERS Safety Report 20508968 (Version 1)
Quarter: 2022Q1

REPORT INFORMATION
  Report Type: Spontaneous
  Country: US (occurrence: None)
  Receive Date: 20220218
  Receipt Date: 20220218
  Transmission Date: 20220423
  Serious: Yes (Other)
  Sender: FDA-Public Use
  Company Number: None

PATIENT
  Age: 8 Year
  Sex: Male
  Weight: 36 kg

DRUGS (1)
  1. IVERMECTIN [Suspect]
     Active Substance: IVERMECTIN
     Indication: COVID-19
     Dosage: OTHER FREQUENCY : ONCE;?
     Route: 048
     Dates: start: 20211008, end: 20211008

REACTIONS (5)
  - Off label use [None]
  - Vision blurred [None]
  - Visual impairment [None]
  - Nervous system disorder [None]
  - Photopsia [None]

NARRATIVE: CASE EVENT DATE: 20211008
